FAERS Safety Report 10099104 (Version 1)
Quarter: 2014Q2

REPORT INFORMATION
  Report Type: Spontaneous
  Country: US (occurrence: US)
  Receive Date: 20140423
  Receipt Date: 20140423
  Transmission Date: 20141212
  Serious: No
  Sender: FDA-Public Use
  Company Number: US-GILEAD-2013-0067262

PATIENT
  Sex: Male

DRUGS (2)
  1. LETAIRIS [Suspect]
     Indication: PULMONARY ARTERIAL HYPERTENSION
     Route: 048
     Dates: start: 20111229
  2. VENTAVIS [Concomitant]

REACTIONS (4)
  - Hypersomnia [Unknown]
  - Weight increased [Unknown]
  - Feeling abnormal [Unknown]
  - Fatigue [Unknown]
